FAERS Safety Report 8416416-2 (Version None)
Quarter: 2012Q2

REPORT INFORMATION
  Report Type: 
  Country: None (occurrence: None)
  Receive Date: 20120606
  Receipt Date: 20120524
  Transmission Date: 20120825
  Serious: Yes (Hospitalization, Other)
  Sender: FDA-Public Use
  Company Number: US-ELI_LILLY_AND_COMPANY-US201110006796

PATIENT
  Sex: Female
  Weight: 84.807 kg

DRUGS (19)
  1. FORTEO [Suspect]
     Indication: OSTEOPOROSIS
     Dosage: 20 UG, QD
     Route: 065
     Dates: start: 20110901, end: 20120426
  2. DULOXETINE HYDROCHLORIDE [Concomitant]
     Dosage: 60 MG, QD
  3. M.V.I. [Concomitant]
  4. VICODIN [Concomitant]
  5. NORTRIPTYLINE HCL [Concomitant]
  6. FUROSEMIDE [Concomitant]
  7. DAYPRO [Concomitant]
  8. FISH OIL [Concomitant]
  9. FORTEO [Suspect]
     Dosage: 20 UG, QD
     Route: 065
     Dates: start: 20110901, end: 20120108
  10. XANAX [Concomitant]
  11. HYDROXYZINE HYDROCHLORIDE [Concomitant]
  12. FORTEO [Suspect]
     Dosage: 20 UG, QD
     Dates: start: 20120301
  13. POTASSIUM CHLORIDE [Concomitant]
  14. LEVOTHYROXINE SODIUM [Concomitant]
  15. ZOLPIDEM [Concomitant]
  16. CALCIUM W/VITAMIN D NOS [Concomitant]
  17. FORTEO [Suspect]
     Dosage: 20 UG, QD
     Dates: start: 20120301
  18. PRAVASTATIN [Concomitant]
  19. CITALOPRAM HYDROBROMIDE [Concomitant]

REACTIONS (11)
  - BONE PAIN [None]
  - ARTHRALGIA [None]
  - BACK PAIN [None]
  - PAIN [None]
  - JOINT INJURY [None]
  - CYSTITIS [None]
  - DISORIENTATION [None]
  - CHOLECYSTITIS INFECTIVE [None]
  - FALL [None]
  - SLEEP DISORDER DUE TO A GENERAL MEDICAL CONDITION [None]
  - JOINT SWELLING [None]
